FAERS Safety Report 21116967 (Version 1)
Quarter: 2022Q3

REPORT INFORMATION
  Report Type: Spontaneous
  Country: DE (occurrence: DE)
  Receive Date: 20220722
  Receipt Date: 20220722
  Transmission Date: 20221026
  Serious: Yes (Other)
  Sender: FDA-Public Use
  Company Number: None

PATIENT
  Age: 29 Year
  Sex: Male
  Weight: 76 kg

DRUGS (2)
  1. PAROXETINE [Suspect]
     Active Substance: PAROXETINE
     Indication: Obsessive-compulsive disorder
     Dosage: UNIT DOSE : 20MG, DURATION : 4 MONTHS
     Route: 065
     Dates: start: 201812, end: 201904
  2. PAROXETINE [Suspect]
     Active Substance: PAROXETINE
     Dosage: 20 MG, DURATION : 5 MONTHS
     Route: 065
     Dates: start: 20171108, end: 201804

REACTIONS (3)
  - Erectile dysfunction [Recovered/Resolved with Sequelae]
  - Libido disorder [Recovered/Resolved with Sequelae]
  - Genital anaesthesia [Recovered/Resolved with Sequelae]

NARRATIVE: CASE EVENT DATE: 20190501
